FAERS Safety Report 14032870 (Version 1)
Quarter: 2017Q4

REPORT INFORMATION
  Report Type: Spontaneous
  Country: HR (occurrence: HR)
  Receive Date: 20171003
  Receipt Date: 20171003
  Transmission Date: 20180321
  Serious: Yes (Hospitalization, Other)
  Sender: FDA-Public Use
  Company Number: HR-JNJFOC-20170930542

PATIENT
  Age: 64 Year
  Sex: Male

DRUGS (2)
  1. ASPIRIN PROTECT [Suspect]
     Active Substance: ASPIRIN
     Indication: PRODUCT USED FOR UNKNOWN INDICATION
     Route: 065
  2. XARELTO [Suspect]
     Active Substance: RIVAROXABAN
     Indication: PRODUCT USED FOR UNKNOWN INDICATION
     Route: 048

REACTIONS (10)
  - Eye movement disorder [Recovered/Resolved]
  - Hemiparesis [Recovered/Resolved]
  - Atrial fibrillation [Unknown]
  - Facial paresis [Recovered/Resolved]
  - Dysarthria [Recovered/Resolved]
  - Arterial stenosis [Unknown]
  - Speech disorder [Recovered/Resolved]
  - Muscular weakness [Recovered/Resolved]
  - Nervous system disorder [Recovered/Resolved]
  - Carotid artery occlusion [Unknown]
